FAERS Safety Report 9345246 (Version 1)
Quarter: 2013Q2

REPORT INFORMATION
  Report Type: Spontaneous
  Country: US (occurrence: US)
  Receive Date: 20130612
  Receipt Date: 20130612
  Transmission Date: 20140414
  Serious: Yes (Other)
  Sender: FDA-Public Use
  Company Number: US-ELI_LILLY_AND_COMPANY-US201207004958

PATIENT
  Sex: Male

DRUGS (3)
  1. FORTEO [Suspect]
     Indication: OSTEOPOROSIS
     Dosage: 20 UG, QD
  2. SIMVASTATIN [Concomitant]
  3. GLUCOZIDE [Concomitant]

REACTIONS (2)
  - Cerebrovascular accident [Unknown]
  - Incorrect drug administration duration [Unknown]
